FAERS Safety Report 4277949-6 (Version None)
Quarter: 2004Q1

REPORT INFORMATION
  Report Type: 
  Country: None (occurrence: None)
  Receive Date: 20040120
  Receipt Date: 20040107
  Transmission Date: 20041129
  Serious: Yes (Other)
  Sender: FDA-Public Use
  Company Number: US-SHR-03-015068

PATIENT
  Age: 49 Year
  Sex: Female
  Weight: 60.8 kg

DRUGS (14)
  1. BETASERON [Suspect]
     Indication: MULTIPLE SCLEROSIS
     Dosage: 8 MIU, EVERY 2D, SUBCUTANEOUS
     Route: 058
     Dates: start: 19950503, end: 20031106
  2. AMANTADINE HCL [Concomitant]
  3. BACLOFEN [Concomitant]
  4. PROVIGIL (MODAFENIL) [Concomitant]
  5. ZELNORM [Concomitant]
  6. FOSAMAX [Concomitant]
  7. DARVOCET-N (DEXTROPROPOXYPHENE NAPSILATE) [Concomitant]
  8. HYDROXYZINE [Concomitant]
  9. MIGRAZONE (DICHLORALPHENAZONE, ISOMETHEPTENE) [Concomitant]
  10. NITROGLYCERIN [Concomitant]
  11. ALBUTEROL [Concomitant]
  12. TYLOX (OXYCODONE HYDROCHLORIDE) [Concomitant]
  13. PROZAC [Concomitant]
  14. IMIPRAMINE [Concomitant]

REACTIONS (10)
  - CALCINOSIS [None]
  - FAT NECROSIS [None]
  - INJECTION SITE CELLULITIS [None]
  - INJECTION SITE ERYTHEMA [None]
  - INJECTION SITE FIBROSIS [None]
  - INJECTION SITE INFECTION [None]
  - INJECTION SITE MASS [None]
  - INJECTION SITE NECROSIS [None]
  - INJECTION SITE REACTION [None]
  - PANNICULITIS [None]
